FAERS Safety Report 4302772-3 (Version None)
Quarter: 2004Q1

REPORT INFORMATION
  Report Type: 
  Country: None (occurrence: None)
  Receive Date: 20040224
  Receipt Date: 20031202
  Transmission Date: 20041129
  Serious: No
  Sender: FDA-Public Use
  Company Number: US-BRISTOL-MYERS SQUIBB COMPANY-12448429

PATIENT
  Age: 68 Year
  Sex: Male

DRUGS (8)
  1. KENALOG-10 [Suspect]
     Indication: ITCHING SCAR
     Route: 051
     Dates: start: 20031126, end: 20031126
  2. BACTERIOSTATIC SODIUM CHLORIDE 0.9% [Concomitant]
     Route: 051
     Dates: start: 20031126, end: 20031126
  3. LIPITOR [Concomitant]
  4. COZAAR [Concomitant]
  5. CELEXA [Concomitant]
  6. ATENOLOL [Concomitant]
  7. ASPIRIN [Concomitant]
  8. MULTI-VITAMIN [Concomitant]

REACTIONS (1)
  - PIGMENTATION DISORDER [None]
